FAERS Safety Report 5100764-8 (Version None)
Quarter: 2006Q3

REPORT INFORMATION
  Report Type: 
  Country: None (occurrence: None)
  Receive Date: 20060906
  Receipt Date: 20060822
  Transmission Date: 20061208
  Serious: Yes (Life-Threatening)
  Sender: FDA-Public Use
  Company Number: 14684

PATIENT
  Age: 76 Year
  Sex: Male
  Weight: 78 kg

DRUGS (1)
  1. AMIODARONE HCL [Suspect]
     Indication: ATRIAL FLUTTER
     Dates: start: 20060627, end: 20060627

REACTIONS (6)
  - CHEST DISCOMFORT [None]
  - ERYTHEMA [None]
  - HYPERTENSION [None]
  - HYPOTENSION [None]
  - RESPIRATORY ARREST [None]
  - TACHYCARDIA [None]
